FAERS Safety Report 6102159-7 (Version None)
Quarter: 2009Q1

REPORT INFORMATION
  Report Type: 
  Country: None (occurrence: None)
  Receive Date: 20090303
  Receipt Date: 20090303
  Transmission Date: 20090719
  Serious: No
  Sender: FDA-Public Use
  Company Number: None

PATIENT
  Sex: Female
  Weight: 64.8644 kg

DRUGS (7)
  1. AVELOX -MOXIFLOXACIN HCL- 400 MG / 250 ML BAYER HEALTHCARE [Suspect]
     Indication: PNEUMONIA
     Dosage: 250 ML DAILY IV DRIP
     Route: 041
     Dates: start: 20090226, end: 20090226
  2. ALBUTEROL [Concomitant]
  3. . [Concomitant]
  4. LOVENOX [Concomitant]
  5. ADVAIR HFA [Concomitant]
  6. IPRATROPIUM BROMIDE [Concomitant]
  7. SODIUM CHLORIDE [Concomitant]

REACTIONS (1)
  - INFUSION SITE URTICARIA [None]
